FAERS Safety Report 10187222 (Version 2)
Quarter: 2014Q2

REPORT INFORMATION
  Report Type: Spontaneous
  Country: US (occurrence: US)
  Receive Date: 20140522
  Receipt Date: 20140522
  Transmission Date: 20141212
  Serious: Yes (Hospitalization)
  Sender: FDA-Public Use
  Company Number: PHEH2014US006614

PATIENT
  Age: 66 Year
  Sex: Female
  Weight: 101 kg

DRUGS (8)
  1. SANDOSTATIN [Suspect]
     Indication: METASTATIC CARCINOID TUMOUR
     Dosage: 200 UG, SINGLE TEST DOSE
     Dates: start: 20140228, end: 20140228
  2. SANDOSTATIN [Suspect]
     Dosage: 200 UG, BID, FOR 2 WEEKS
     Dates: start: 20140318, end: 20140331
  3. SANDOSTATIN [Suspect]
     Dosage: 200 UG, BID
     Dates: start: 20140422, end: 20140425
  4. AMLODIPINE [Concomitant]
     Indication: HYPERTENSION
     Dosage: 10 MG, QD
     Route: 048
  5. COLACE [Concomitant]
     Indication: CONSTIPATION
     Dosage: 100 MG, PRN
     Route: 048
  6. LORAZEPAM [Concomitant]
     Indication: ANXIETY
     Dosage: 0.5 MG, QD
     Route: 048
  7. NEXIUM//ESOMEPRAZOLE MAGNESIUM [Concomitant]
     Indication: GASTROOESOPHAGEAL REFLUX DISEASE
     Dosage: 40 MG, QD
     Route: 048
  8. OXYCODON [Concomitant]
     Indication: PAIN
     Dosage: 5 MG, PRN
     Route: 048

REACTIONS (3)
  - Cancer pain [Unknown]
  - Hyponatraemia [Recovered/Resolved]
  - Abdominal pain [Recovered/Resolved]
